FAERS Safety Report 8932496 (Version 1)
Quarter: 2012Q4

REPORT INFORMATION
  Report Type: Spontaneous
  Country: US (occurrence: None)
  Receive Date: 20121126
  Receipt Date: 20121126
  Transmission Date: 20130627
  Serious: Yes (Other)
  Sender: FDA-Public Use
  Company Number: None

PATIENT
  Age: 82 Year
  Sex: Female
  Weight: 63.5 kg

DRUGS (1)
  1. GABAPENTIN [Suspect]
     Indication: NEUROPATHY PERIPHERAL
     Route: 048
     Dates: start: 20120918, end: 20120925

REACTIONS (6)
  - Constipation [None]
  - Dizziness [None]
  - Cystitis [None]
  - Memory impairment [None]
  - Tremor [None]
  - Oedema peripheral [None]
